FAERS Safety Report 8358022-4 (Version None)
Quarter: 2012Q2

REPORT INFORMATION
  Report Type: 
  Country: None (occurrence: None)
  Receive Date: 20120514
  Receipt Date: 20120510
  Transmission Date: 20120825
  Serious: Yes (Other)
  Sender: FDA-Public Use
  Company Number: US-BAYER-2012-046763

PATIENT
  Age: 40 Year

DRUGS (1)
  1. MAGNEVIST [Suspect]
     Indication: SCAN
     Dosage: 23 ML, ONCE
     Dates: start: 20120510, end: 20120510

REACTIONS (3)
  - ANAPHYLACTIC REACTION [None]
  - PRURITUS [None]
  - TACHYCARDIA [None]
